FAERS Safety Report 7724474-3 (Version None)
Quarter: 2011Q3

REPORT INFORMATION
  Report Type: 
  Country: None (occurrence: None)
  Receive Date: 20110901
  Receipt Date: 20110829
  Transmission Date: 20111222
  Serious: Yes (Other)
  Sender: FDA-Public Use
  Company Number: US-GLAXOSMITHKLINE-A0942721A

PATIENT
  Age: 51 Year
  Sex: Female

DRUGS (6)
  1. LIPITOR [Concomitant]
  2. XOPENEX [Concomitant]
  3. COMBIVENT [Concomitant]
  4. SEREVENT [Suspect]
     Indication: ASTHMA
     Dosage: 1PUFF TWICE PER DAY
     Route: 055
     Dates: start: 19940601, end: 19941201
  5. FLOVENT [Suspect]
     Indication: ASTHMA
     Dosage: 2PUFF TWICE PER DAY
     Route: 055
  6. FLECAINIDE ACETATE [Concomitant]

REACTIONS (2)
  - ATRIAL FIBRILLATION [None]
  - DRY MOUTH [None]
